FAERS Safety Report 6597164-0 (Version None)
Quarter: 2010Q1

REPORT INFORMATION
  Report Type: 
  Country: None (occurrence: None)
  Receive Date: 20100223
  Receipt Date: 20100123
  Transmission Date: 20100710
  Serious: No
  Sender: FDA-Public Use
  Company Number: US-BAYER-201012373NA

PATIENT
  Age: 67 Year
  Sex: Male
  Weight: 76 kg

DRUGS (1)
  1. CIPRO [Suspect]
     Indication: SINUSITIS
     Dates: start: 20100119, end: 20100122

REACTIONS (3)
  - DIARRHOEA [None]
  - STOMATITIS [None]
  - VOMITING [None]
